FAERS Safety Report 7387190-6 (Version None)
Quarter: 2011Q1

REPORT INFORMATION
  Report Type: 
  Country: None (occurrence: None)
  Receive Date: 20110331
  Receipt Date: 20110325
  Transmission Date: 20110831
  Serious: Yes (Hospitalization)
  Sender: FDA-Public Use
  Company Number: B0708356A

PATIENT
  Sex: Female

DRUGS (8)
  1. PARIET [Concomitant]
     Dosage: 10MG UNKNOWN
     Route: 048
  2. CIFLOX [Suspect]
     Dosage: 500MG TWICE PER DAY
     Route: 048
     Dates: start: 20101207, end: 20101207
  3. BIPROFENID [Suspect]
     Dosage: 150MG UNKNOWN
     Route: 048
     Dates: start: 20101207, end: 20101209
  4. LEVOTHYROX [Concomitant]
     Indication: HYPOTHYROIDISM
     Dosage: 175MCG PER DAY
     Route: 048
  5. FUROSEMIDE [Concomitant]
     Dosage: 40MG UNKNOWN
     Route: 048
  6. AUGMENTIN [Suspect]
     Dosage: 1G TWICE PER DAY
     Route: 048
     Dates: start: 20101207, end: 20101209
  7. KENZEN [Concomitant]
     Dosage: 12MG PER DAY
     Route: 048
  8. KARDEGIC [Concomitant]
     Dosage: 160MG PER DAY
     Route: 048

REACTIONS (5)
  - LIP OEDEMA [None]
  - MALAISE [None]
  - URTICARIA [None]
  - FALL [None]
  - PYREXIA [None]
